FAERS Safety Report 5895452-4 (Version None)
Quarter: 2008Q3

REPORT INFORMATION
  Report Type: 
  Country: None (occurrence: None)
  Receive Date: 20080923
  Receipt Date: 20080923
  Transmission Date: 20090109
  Serious: Yes (Other)
  Sender: FDA-Public Use
  Company Number: None

PATIENT
  Age: 44 Year
  Sex: Female
  Weight: 68.0396 kg

DRUGS (1)
  1. CYMBALTA [Suspect]
     Indication: ANXIETY
     Dosage: 1 PER DAY AT NIGHT ONCE PO
     Route: 048
     Dates: start: 20070826, end: 20080808

REACTIONS (18)
  - AGGRESSION [None]
  - ANHEDONIA [None]
  - APHAGIA [None]
  - ARTHRALGIA [None]
  - ASTHENIA [None]
  - BACK PAIN [None]
  - DIZZINESS [None]
  - DRUG WITHDRAWAL SYNDROME [None]
  - EMOTIONAL DISORDER [None]
  - HEADACHE [None]
  - IMPAIRED DRIVING ABILITY [None]
  - IRRITABILITY [None]
  - MENTAL IMPAIRMENT [None]
  - PAIN [None]
  - PAIN IN EXTREMITY [None]
  - SPEECH DISORDER [None]
  - SUICIDAL IDEATION [None]
  - TREMOR [None]
